FAERS Safety Report 12728171 (Version 1)
Quarter: 2016Q3

REPORT INFORMATION
  Report Type: Spontaneous
  Country: US (occurrence: US)
  Receive Date: 20160907
  Receipt Date: 20160907
  Transmission Date: 20161109
  Serious: Yes (Death)
  Sender: FDA-Public Use
  Company Number: None

PATIENT
  Age: 76 Year
  Sex: Female
  Weight: 56.4 kg

DRUGS (1)
  1. WARFARIN [Suspect]
     Active Substance: WARFARIN

REACTIONS (5)
  - Cerebral haemorrhage [None]
  - Cerebral infarction [None]
  - International normalised ratio increased [None]
  - Unresponsive to stimuli [None]
  - Thrombosis [None]

NARRATIVE: CASE EVENT DATE: 20151115
